FAERS Safety Report 4553628-2 (Version None)
Quarter: 2004Q4

REPORT INFORMATION
  Report Type: 
  Country: None (occurrence: None)
  Receive Date: 20041227
  Receipt Date: 20041102
  Transmission Date: 20050328
  Serious: No
  Sender: FDA-Public Use
  Company Number: 04P-163-0277875-00

PATIENT
  Age: 67 Year
  Sex: Female
  Weight: 85.2762 kg

DRUGS (7)
  1. HUMIRA [Suspect]
     Indication: RHEUMATOID ARTHRITIS
     Dosage: 40 MG, 1 IN 2 WK, SUBCUTANEOUS
     Route: 058
     Dates: start: 20040901
  2. PREDNISONE [Concomitant]
  3. FOLIC ACID [Concomitant]
  4. METHOTREXATE SODIUM [Concomitant]
  5. BLOOD PRESSURE MEDICATION [Concomitant]
  6. HYDROCODONE [Concomitant]
  7. CALCIUM CARBONATE [Concomitant]

REACTIONS (5)
  - ARTHRALGIA [None]
  - INJECTION SITE BURNING [None]
  - PAIN [None]
  - RASH [None]
  - RHEUMATOID ARTHRITIS [None]
